FAERS Safety Report 25623162 (Version 1)
Quarter: 2025Q3

REPORT INFORMATION
  Report Type: Spontaneous
  Country: US (occurrence: US)
  Receive Date: 20250730
  Receipt Date: 20250730
  Transmission Date: 20251021
  Serious: Yes (Other)
  Sender: PFIZER
  Company Number: US-PFIZER INC-PV202500091321

PATIENT
  Age: 72 Year
  Sex: Female

DRUGS (1)
  1. XELJANZ XR [Suspect]
     Active Substance: TOFACITINIB CITRATE
     Indication: Rheumatoid arthritis
     Dosage: 11 MG, DAILY
     Route: 048
     Dates: start: 2024

REACTIONS (10)
  - Autoimmune disorder [Unknown]
  - Diabetes mellitus [Unknown]
  - Hypothyroidism [Unknown]
  - Hypertension [Unknown]
  - Hypertonic bladder [Unknown]
  - Osteoarthritis [Unknown]
  - Dry eye [Unknown]
  - Folate deficiency [Unknown]
  - Depressed mood [Unknown]
  - Discouragement [Unknown]
